FAERS Safety Report 8132373 (Version 2)
Quarter: 2013Q2

REPORT INFORMATION
  Report Type: Spontaneous
  Country: US (occurrence: None)
  Receive Date: 20110817
  Receipt Date: 20120817
  Transmission Date: 20140414
  Serious: Yes (Other)
  Sender: FDA-Public Use
  Company Number: 201110273

PATIENT
  Age: 48 Year
  Sex: Female

DRUGS (1)
  1. LIORESAL [Suspect]
     Indication: MUSCLE SPASTICITY
     Dosage: 399.8MCG, DAILY,
     Route: 037

REACTIONS (1)
  - THERAPEUTIC RESPONSE DECREASED [None]
